FAERS Safety Report 13893407 (Version 1)
Quarter: 2017Q3

REPORT INFORMATION
  Report Type: Spontaneous
  Country: US (occurrence: US)
  Receive Date: 20170822
  Receipt Date: 20170822
  Transmission Date: 20171127
  Serious: No
  Sender: FDA-Public Use
  Company Number: US-ROCHE-1443388

PATIENT
  Age: 31 Year
  Sex: Female

DRUGS (7)
  1. XELODA [Suspect]
     Active Substance: CAPECITABINE
     Indication: PRODUCT USED FOR UNKNOWN INDICATION
     Route: 065
  2. TAXOTERE [Concomitant]
     Active Substance: DOCETAXEL
  3. ADRIAMYCIN [Concomitant]
     Active Substance: DOXORUBICIN HYDROCHLORIDE
  4. CYTOXAN [Concomitant]
     Active Substance: CYCLOPHOSPHAMIDE
  5. HERCEPTIN [Suspect]
     Active Substance: TRASTUZUMAB
     Indication: BREAST CANCER
     Route: 065
  6. PERJETA [Suspect]
     Active Substance: PERTUZUMAB
     Indication: BREAST CANCER
     Route: 065
  7. KADCYLA [Suspect]
     Active Substance: ADO-TRASTUZUMAB EMTANSINE
     Indication: BREAST CANCER
     Route: 065
     Dates: start: 201302

REACTIONS (24)
  - Alopecia [Unknown]
  - Pyrexia [Unknown]
  - Cardiac disorder [Unknown]
  - Muscular weakness [Unknown]
  - Infection [Unknown]
  - Fatigue [Unknown]
  - Gastric infection [Unknown]
  - Staphylococcal infection [Unknown]
  - Motor dysfunction [Unknown]
  - Colitis [Unknown]
  - Skin infection [Unknown]
  - Clostridium difficile infection [Unknown]
  - Dizziness [Unknown]
  - Blister [Unknown]
  - Rash [Unknown]
  - Pain in extremity [Unknown]
  - Nausea [Unknown]
  - Diarrhoea [Unknown]
  - Neurological symptom [Unknown]
  - Neuropathy peripheral [Unknown]
  - Amnesia [Unknown]
  - Anaemia [Unknown]
  - Skin burning sensation [Unknown]
  - Furuncle [Unknown]
